FAERS Safety Report 5987215-6 (Version None)
Quarter: 2008Q4

REPORT INFORMATION
  Report Type: 
  Country: None (occurrence: None)
  Receive Date: 20081209
  Receipt Date: 20081204
  Transmission Date: 20090506
  Serious: Yes (Other)
  Sender: FDA-Public Use
  Company Number: US-ABBOTT-08P-163-0433410-00

PATIENT
  Sex: Female

DRUGS (5)
  1. HUMIRA [Suspect]
     Indication: CROHN'S DISEASE
     Route: 058
     Dates: start: 20071217, end: 20071217
  2. HUMIRA [Suspect]
     Dosage: 1 IN 2WKS, 2ND DOSE WAS 1WK LATE DUE TO INSURANCE PROBLEMS.
     Route: 058
     Dates: start: 20080107
  3. PREDNISONE TAB [Suspect]
     Indication: CROHN'S DISEASE
     Route: 048
  4. MESALAMINE [Suspect]
     Indication: CROHN'S DISEASE
     Dosage: 1 IN 1 DAY, 12 PILLS TAKEN AT ONE TIME.
     Route: 048
  5. MERCAPTOPURINE [Suspect]
     Indication: CROHN'S DISEASE
     Route: 048
     Dates: start: 19990101, end: 20071201

REACTIONS (4)
  - ABORTION SPONTANEOUS [None]
  - CROHN'S DISEASE [None]
  - MALAISE [None]
  - NO ADVERSE EVENT [None]
